FAERS Safety Report 10615167 (Version 2)
Quarter: 2015Q1

REPORT INFORMATION
  Report Type: Spontaneous
  Country: CH (occurrence: CH)
  Receive Date: 20141201
  Receipt Date: 20150309
  Transmission Date: 20150720
  Serious: Yes (Life-Threatening, Hospitalization, Other)
  Sender: FDA-Public Use
  Company Number: PHHY2014CH156323

PATIENT
  Age: 46 Year
  Sex: Female

DRUGS (3)
  1. LEPONEX [Suspect]
     Active Substance: CLOZAPINE
     Indication: SCHIZOPHRENIA
     Dosage: 275 MG, QD, 1 D (EVENING)
     Route: 065
     Dates: start: 201403
  2. PANTOPRAZOLE [Concomitant]
     Active Substance: PANTOPRAZOLE SODIUM
     Indication: PRODUCT USED FOR UNKNOWN INDICATION
     Dosage: 2.5 MG, BID (MORNING AND NIGHT)
     Route: 065
  3. TEMESTA [Concomitant]
     Active Substance: LORAZEPAM
     Indication: PRODUCT USED FOR UNKNOWN INDICATION
     Dosage: 2.5 MG, BID (TWICE PER DAY)
     Route: 065

REACTIONS (2)
  - Cardiac tamponade [Recovered/Resolved]
  - Contraindicated drug administered [Unknown]

NARRATIVE: CASE EVENT DATE: 20141117
